FAERS Safety Report 25070117 (Version 1)
Quarter: 2025Q1

REPORT INFORMATION
  Report Type: Spontaneous
  Country: IL (occurrence: IL)
  Receive Date: 20250312
  Receipt Date: 20250312
  Transmission Date: 20250409
  Serious: Yes (Life-Threatening)
  Sender: ELI LILLY AND COMPANY
  Company Number: IL-ELI_LILLY_AND_COMPANY-IL202502020640

PATIENT
  Age: 21 Year
  Sex: Male
  Weight: 78.5 kg

DRUGS (1)
  1. OMVOH [Suspect]
     Active Substance: MIRIKIZUMAB-MRKZ
     Indication: Colitis ulcerative
     Route: 042
     Dates: start: 20250223, end: 20250223

REACTIONS (1)
  - Drug hypersensitivity [Recovered/Resolved]

NARRATIVE: CASE EVENT DATE: 20250223
